FAERS Safety Report 9180661 (Version 1)
Quarter: 2013Q1

REPORT INFORMATION
  Report Type: Spontaneous
  Country: US (occurrence: US)
  Receive Date: 20130322
  Receipt Date: 20130322
  Transmission Date: 20140127
  Serious: Yes (Other)
  Sender: FDA-Public Use
  Company Number: US-ELI_LILLY_AND_COMPANY-US201303005913

PATIENT
  Sex: Male

DRUGS (2)
  1. CIALIS [Suspect]
     Dosage: 5 MG, UNK
  2. CIALIS [Suspect]
     Dosage: 10 MG, UNK

REACTIONS (2)
  - Skull fracture [Unknown]
  - Drug ineffective [Unknown]
